FAERS Safety Report 5284688-1 (Version None)
Quarter: 2007Q1

REPORT INFORMATION
  Report Type: 
  Country: None (occurrence: None)
  Receive Date: 20070328
  Receipt Date: 20070316
  Transmission Date: 20070707
  Serious: Yes (Death)
  Sender: FDA-Public Use
  Company Number: 2007BI003970

PATIENT
  Age: 64 Year
  Sex: Female

DRUGS (10)
  1. AVONEX [Suspect]
     Indication: MULTIPLE SCLEROSIS
     Dosage: IM
     Route: 030
  2. AVONEX [Suspect]
     Indication: MULTIPLE SCLEROSIS
     Dosage: 30 UG QW IM
     Route: 030
  3. CYSTOSPAZ [Concomitant]
  4. BACLOFEN [Concomitant]
  5. LIPITOR [Concomitant]
  6. LISINOPRIL [Concomitant]
  7. NEXIUM [Concomitant]
  8. PROZAC [Concomitant]
  9. TRILEPTAL [Concomitant]
  10. DARVOCET [Concomitant]

REACTIONS (1)
  - RESPIRATORY FAILURE [None]
